FAERS Safety Report 6814571-9 (Version None)
Quarter: 2010Q2

REPORT INFORMATION
  Report Type: 
  Country: None (occurrence: None)
  Receive Date: 20100629
  Receipt Date: 20100615
  Transmission Date: 20101027
  Serious: Yes (Other)
  Sender: FDA-Public Use
  Company Number: 2010S1002567

PATIENT
  Age: 71 Year
  Sex: Female

DRUGS (13)
  1. PHOSPHOSODA FLAVOR NOT SPECIFIED [Suspect]
     Indication: COLONOSCOPY
     Dosage: 90 ML;TOTAL;PO
     Route: 048
     Dates: start: 20070108, end: 20070109
  2. PHOSPHOSODA FLAVOR NOT SPECIFIED [Suspect]
     Indication: OESOPHAGOGASTRODUODENOSCOPY
     Dosage: 90 ML;TOTAL;PO
     Route: 048
     Dates: start: 20070108, end: 20070109
  3. DULCOLAX [Suspect]
     Indication: COLONOSCOPY
     Dosage: 2 DF; PO
     Route: 048
     Dates: start: 20070108, end: 20070108
  4. DULCOLAX [Suspect]
     Indication: OESOPHAGOGASTRODUODENOSCOPY
     Dosage: 2 DF; PO
     Route: 048
     Dates: start: 20070108, end: 20070108
  5. TYLENOL (CAPLET) [Concomitant]
  6. AMBIEN [Concomitant]
  7. CALCIUM CARBONATE [Concomitant]
  8. ATIVAN [Concomitant]
  9. NEXIUM [Concomitant]
  10. OXYBUTYNIN CHLORIDE [Concomitant]
  11. PATANOL [Concomitant]
  12. SYNTHROID [Concomitant]
  13. MULTI-VITAMINS [Concomitant]

REACTIONS (6)
  - ASTHENIA [None]
  - DECREASED APPETITE [None]
  - NOCTURIA [None]
  - PERITONEAL DIALYSIS [None]
  - RENAL FAILURE ACUTE [None]
  - WEIGHT DECREASED [None]
